FAERS Safety Report 13388190 (Version 1)
Quarter: 2017Q1

REPORT INFORMATION
  Report Type: Spontaneous
  Country: GB (occurrence: GB)
  Receive Date: 20170330
  Receipt Date: 20170330
  Transmission Date: 20170429
  Serious: Yes (Hospitalization)
  Sender: FDA-Public Use
  Company Number: GB-TEVA-752666ACC

PATIENT
  Age: 52 Year
  Sex: Male
  Weight: 75 kg

DRUGS (15)
  1. ACICLOVIR [Concomitant]
     Active Substance: ACYCLOVIR
     Dosage: 2 DOSAGE FORMS DAILY;
     Dates: start: 20151117
  2. COAL TAR. [Concomitant]
     Active Substance: COAL TAR
     Dosage: APPLY 2-3 TIMES/DAY
     Dates: start: 20151117
  3. DIAMORPHINE HYDROCHLORIDE [Concomitant]
     Active Substance: DIACETYLMORPHINE HYDROCHLORIDE
     Dosage: 30 MILLIGRAM DAILY;
     Dates: start: 20170306, end: 20170307
  4. EPADERM [Concomitant]
     Active Substance: MINERAL OIL\PETROLATUM\WAX, EMULSIFYING
     Dosage: 3 DOSAGE FORMS DAILY;
     Dates: start: 20151117
  5. MIDAZOLAM [Concomitant]
     Active Substance: MIDAZOLAM HYDROCHLORIDE
     Dosage: 30 MILLIGRAM DAILY;
     Dates: start: 20170306, end: 20170307
  6. CORSODYL [Concomitant]
     Active Substance: CHLORHEXIDINE GLUCONATE
     Dosage: 40 ML DAILY;
     Dates: start: 20151117
  7. HYOSCINE BUTYLBROMIDE [Concomitant]
     Active Substance: BUTYLSCOPOLAMINE
     Dosage: 120 MILLIGRAM DAILY;
     Dates: start: 20170306, end: 20170307
  8. BETNOVATE [Concomitant]
     Active Substance: BETAMETHASONE
     Dosage: 2 DOSAGE FORMS DAILY;
     Dates: start: 20151117
  9. COTRIMOXAZOLE [Concomitant]
     Active Substance: SULFAMETHOXAZOLE\TRIMETHOPRIM
     Dosage: 1 DOSAGE FORMS DAILY;
     Dates: start: 20151117
  10. VORICONAZOLE. [Concomitant]
     Active Substance: VORICONAZOLE
     Dosage: 2 DOSAGE FORMS DAILY;
     Dates: start: 20151117
  11. DERMOL [Concomitant]
     Active Substance: BENZALKONIUM CHLORIDE\CHLORHEXIDINE HYDROCHLORIDE\ISOPROPYL MYRISTATE\PARAFFIN
     Dosage: USE AS DIRECTED
     Dates: start: 20151117
  12. POLYTAR LIQUID [Concomitant]
     Dosage: USE 2-4 CAPFULS IN BATH AND SOAK FOR 20 MINUTES
     Dates: start: 20151117
  13. AMOXICILLIN. [Suspect]
     Active Substance: AMOXICILLIN
     Dates: start: 20170308
  14. HALOPERIDOL. [Concomitant]
     Active Substance: HALOPERIDOL
     Dosage: 4 MILLIGRAM DAILY;
     Dates: start: 20170306, end: 20170307
  15. DOUBLEBASE [Concomitant]
     Active Substance: ISOPROPYL MYRISTATE\PARAFFIN
     Dosage: USE AS NEEDED
     Dates: start: 20151117

REACTIONS (1)
  - Pancreatic insufficiency [Recovered/Resolved]

NARRATIVE: CASE EVENT DATE: 20170308
